FAERS Safety Report 25083240 (Version 1)
Quarter: 2025Q1

REPORT INFORMATION
  Report Type: Spontaneous
  Country: GB (occurrence: GB)
  Receive Date: 20250317
  Receipt Date: 20250317
  Transmission Date: 20250409
  Serious: Yes (Other)
  Sender: HETERO
  Company Number: None

PATIENT
  Age: 40 Year
  Sex: Female
  Weight: 70 kg

DRUGS (2)
  1. FOSAPREPITANT [Suspect]
     Active Substance: FOSAPREPITANT
     Indication: Adverse drug reaction
     Route: 065
  2. FOSAPREPITANT [Suspect]
     Active Substance: FOSAPREPITANT
     Indication: Vomiting

REACTIONS (7)
  - Pelvic pain [Recovered/Resolved]
  - Swelling face [Recovered/Resolved]
  - Syncope [Recovered/Resolved]
  - Flushing [Recovered/Resolved]
  - Nausea [Recovered/Resolved]
  - Abdominal pain [Recovered/Resolved]
  - Hypersensitivity [Unknown]
